FAERS Safety Report 9498320 (Version 2)
Quarter: 2013Q3

REPORT INFORMATION
  Report Type: Spontaneous
  Country: JP (occurrence: JP)
  Receive Date: 20130904
  Receipt Date: 20130924
  Transmission Date: 20140515
  Serious: Yes (Other)
  Sender: FDA-Public Use
  Company Number: JP-PFIZER INC-2013250078

PATIENT
  Age: 42 Year
  Sex: Male

DRUGS (4)
  1. SALAZOPYRIN [Suspect]
     Dosage: UNK
     Route: 048
     Dates: start: 201206, end: 201206
  2. LOXONIN [Suspect]
  3. SELBEX [Suspect]
  4. GARENOXACIN MESILATE [Suspect]

REACTIONS (3)
  - Interstitial lung disease [Unknown]
  - Drug-induced liver injury [Unknown]
  - Drug eruption [Unknown]
